FAERS Safety Report 7534639-1 (Version None)
Quarter: 2011Q2

REPORT INFORMATION
  Report Type: 
  Country: None (occurrence: None)
  Receive Date: 20110609
  Receipt Date: 20110325
  Transmission Date: 20111010
  Serious: Yes (Hospitalization, Other)
  Sender: FDA-Public Use
  Company Number: PHHY2011US27078

PATIENT
  Age: 67 Year
  Sex: Male

DRUGS (11)
  1. CALCIUM CARBONATE [Concomitant]
  2. ZANAFLEX [Suspect]
  3. DIOVAN [Suspect]
  4. WELLBUTRIN [Concomitant]
  5. MULTI-VITAMIN [Concomitant]
  6. BACLOFEN [Concomitant]
  7. AMPYRA [Suspect]
     Dosage: 10 MG, UNK
     Dates: start: 20101001, end: 20101201
  8. TOPROL-XL [Concomitant]
  9. ASPIRIN [Concomitant]
  10. AVONEX [Concomitant]
  11. PRAVACHOL [Concomitant]

REACTIONS (16)
  - URINARY TRACT INFECTION [None]
  - STARING [None]
  - CONVULSION [None]
  - DYSKINESIA [None]
  - CONFUSIONAL STATE [None]
  - RENAL IMPAIRMENT [None]
  - TREMOR [None]
  - PETIT MAL EPILEPSY [None]
  - FOAMING AT MOUTH [None]
  - EYE MOVEMENT DISORDER [None]
  - TONGUE BITING [None]
  - BLADDER DYSFUNCTION [None]
  - DEPRESSION [None]
  - SLEEP DISORDER [None]
  - GRIMACING [None]
  - ABNORMAL BEHAVIOUR [None]
